FAERS Safety Report 7365196-0 (Version None)
Quarter: 2011Q1

REPORT INFORMATION
  Report Type: 
  Country: None (occurrence: None)
  Receive Date: 20110321
  Receipt Date: 20110307
  Transmission Date: 20110831
  Serious: Yes (Hospitalization)
  Sender: FDA-Public Use
  Company Number: ES-MYLANLABS-2011S1004733

PATIENT
  Age: 63 Year
  Sex: Male

DRUGS (4)
  1. MIRTAZAPINE [Suspect]
     Indication: DEPRESSION
     Route: 065
  2. TRAMADOL HCL [Concomitant]
     Route: 065
  3. DULOXETINE [Concomitant]
     Indication: DEPRESSION
     Route: 065
  4. IRBESARTAN [Concomitant]
     Route: 065

REACTIONS (1)
  - HEPATOTOXICITY [None]
